FAERS Safety Report 18045008 (Version 1)
Quarter: 2020Q3

REPORT INFORMATION
  Report Type: Spontaneous
  Country: FR (occurrence: FR)
  Receive Date: 20200720
  Receipt Date: 20200720
  Transmission Date: 20201103
  Serious: Yes (Other)
  Sender: FDA-Public Use
  Company Number: FR-MYLANLABS-2020M1064149

PATIENT
  Age: 29 Year
  Sex: Male
  Weight: 102 kg

DRUGS (2)
  1. MIDAZOLAM. [Suspect]
     Active Substance: MIDAZOLAM
     Indication: SEDATION
     Dosage: UNK
     Route: 042
     Dates: start: 20200607, end: 20200617
  2. LOVENOX [Suspect]
     Active Substance: ENOXAPARIN SODIUM
     Indication: THROMBOSIS PROPHYLAXIS
     Dosage: 0.4 MILLILITER, QD
     Route: 058
     Dates: start: 20200608, end: 20200621

REACTIONS (1)
  - Thrombocytosis [Recovering/Resolving]

NARRATIVE: CASE EVENT DATE: 20200613
